FAERS Safety Report 7876776-8 (Version None)
Quarter: 2011Q4

REPORT INFORMATION
  Report Type: 
  Country: None (occurrence: None)
  Receive Date: 20111031
  Receipt Date: 20111018
  Transmission Date: 20120403
  Serious: Yes (Hospitalization)
  Sender: FDA-Public Use
  Company Number: US-BAYER-2011-025734

PATIENT
  Age: 27 Year
  Sex: Female

DRUGS (12)
  1. PRILOSEC [Concomitant]
     Dosage: 40 MG, QD
     Route: 048
     Dates: start: 20100506
  2. YAZ [Suspect]
     Dosage: UNK
     Dates: start: 20050101, end: 20070701
  3. LEVSIN [Concomitant]
     Dosage: 0.125 MG, UNK
     Route: 060
     Dates: start: 20100615
  4. PRISTIQ [Concomitant]
     Dosage: 50 MG, QD
     Route: 048
     Dates: start: 20100701
  5. DROSPIRENONE AND ETHINYL ESTRADIOL [Suspect]
     Dosage: UNK
     Dates: start: 20050101, end: 20090126
  6. CYMBALTA [Concomitant]
     Dosage: 60 MG, QD
     Dates: start: 20081015, end: 20100701
  7. VITAMIN D [Concomitant]
     Dosage: UNK
     Route: 048
  8. MULTI-VITAMINS [Concomitant]
     Route: 048
  9. FIBERCON [Concomitant]
     Dosage: UNK
     Route: 048
  10. YAZ [Suspect]
     Dosage: UNK
     Dates: start: 20080201, end: 20080601
  11. DROSPIRENONE AND ETHINYL ESTRADIOL [Suspect]
     Dosage: UNK
     Dates: start: 20090126
  12. SIMVASTATIN [Concomitant]
     Dosage: 80 MG, QD
     Route: 048

REACTIONS (9)
  - NAUSEA [None]
  - ANHEDONIA [None]
  - VOMITING [None]
  - CHOLECYSTITIS CHRONIC [None]
  - INJURY [None]
  - GALLBLADDER DISORDER [None]
  - GASTRIC DISORDER [None]
  - PAIN [None]
  - ANXIETY [None]
